FAERS Safety Report 14882894 (Version 2)
Quarter: 2018Q3

REPORT INFORMATION
  Report Type: Spontaneous
  Country: DE (occurrence: DE)
  Receive Date: 20180511
  Receipt Date: 20180710
  Transmission Date: 20181010
  Serious: Yes (Hospitalization)
  Sender: FDA-Public Use
  Company Number: DE-LPDUSPRD-20180786

PATIENT
  Sex: Female

DRUGS (1)
  1. FERINJECT [Suspect]
     Active Substance: FERRIC CARBOXYMALTOSE
     Dosage: 1000 MG
     Route: 041
     Dates: start: 20180406

REACTIONS (10)
  - Influenza like illness [Unknown]
  - C-reactive protein increased [Not Recovered/Not Resolved]
  - Neoplasm malignant [Unknown]
  - Pancreatic failure [Unknown]
  - Serum ferritin increased [Unknown]
  - Weight decreased [Unknown]
  - Adverse event [Unknown]
  - Adverse reaction [Unknown]
  - Haemochromatosis [Unknown]
  - Malaise [Unknown]

NARRATIVE: CASE EVENT DATE: 2018
